FAERS Safety Report 5471624-8 (Version None)
Quarter: 2007Q3

REPORT INFORMATION
  Report Type: 
  Country: None (occurrence: None)
  Receive Date: 20070928
  Receipt Date: 20070312
  Transmission Date: 20080115
  Serious: Yes (Disabling, Other)
  Sender: FDA-Public Use
  Company Number: US-BRISTOL-MYERS SQUIBB COMPANY-13678693

PATIENT
  Age: 52 Year
  Sex: Female

DRUGS (2)
  1. DEFINITY [Suspect]
     Indication: STRESS ECHOCARDIOGRAM
     Route: 042
     Dates: start: 20070206
  2. DOBUTAMINE HCL [Concomitant]

REACTIONS (2)
  - ABDOMINAL DISCOMFORT [None]
  - PELVIC DISCOMFORT [None]
